FAERS Safety Report 7611316-X (Version None)
Quarter: 2011Q3

REPORT INFORMATION
  Report Type: 
  Country: None (occurrence: None)
  Receive Date: 20110707
  Receipt Date: 20110624
  Transmission Date: 20111222
  Serious: Yes (Hospitalization)
  Sender: FDA-Public Use
  Company Number: US-2011-1432

PATIENT
  Sex: Female
  Weight: 72.1 kg

DRUGS (4)
  1. NAVELBINE [Suspect]
     Indication: BREAST CANCER
     Dosage: 25 MG/M2 IV
     Route: 042
     Dates: start: 20110504, end: 20110608
  2. TRASTUZUMAB; REGIMEN #1 [Suspect]
     Indication: BREAST CANCER
     Dosage: 6 MG/KG IV
     Route: 042
     Dates: start: 20110525, end: 20110525
  3. INCB007839 [Suspect]
     Indication: BREAST CANCER
     Dosage: 300 MG PO
     Route: 048
     Dates: start: 20110427, end: 20110601
  4. TRASTUZUMAB; REGIMEN#1 [Suspect]
     Indication: BREAST CANCER
     Dosage: 8 MG/KG QDX1 IV
     Route: 042
     Dates: start: 20110504, end: 20110504

REACTIONS (2)
  - NAUSEA [None]
  - VOMITING [None]
